FAERS Safety Report 6204278-3 (Version None)
Quarter: 2009Q2

REPORT INFORMATION
  Report Type: 
  Country: None (occurrence: None)
  Receive Date: 20090527
  Receipt Date: 20090522
  Transmission Date: 20091009
  Serious: Yes (Hospitalization)
  Sender: FDA-Public Use
  Company Number: US-ASTRAZENECA-2009UW03725

PATIENT
  Age: 340 Month
  Sex: Male
  Weight: 138.3 kg

DRUGS (20)
  1. SEROQUEL [Suspect]
     Indication: SLEEP DISORDER
     Route: 048
     Dates: start: 20041001, end: 20070301
  2. SEROQUEL [Suspect]
     Indication: DEPRESSION
     Route: 048
     Dates: start: 20041001, end: 20070301
  3. WELLBUTRIN [Concomitant]
     Dates: start: 20041001, end: 20070701
  4. REMERON [Concomitant]
     Dates: start: 20060601, end: 20070701
  5. ZOLOFT [Concomitant]
     Dates: start: 20030801, end: 20041001
  6. LIPITOR [Concomitant]
  7. MAXZIDE [Concomitant]
     Dosage: 50 TO 75 MG
  8. PLAVIX [Concomitant]
  9. ASPIRIN [Concomitant]
  10. NORVASC [Concomitant]
  11. MUCINEX D [Concomitant]
  12. IMDUR [Concomitant]
  13. METOPROLOL [Concomitant]
  14. METFORMIN HCL [Concomitant]
  15. ZETIA [Concomitant]
  16. NITROGLYCERIN [Concomitant]
  17. LISINOPRIL [Concomitant]
     Dates: start: 20050201, end: 20081101
  18. CELEBREX [Concomitant]
     Dates: start: 20050401, end: 20061201
  19. PROCARDIA [Concomitant]
     Indication: HYPERTENSION
     Dates: start: 19920101, end: 19970101
  20. TESTOSTERONE [Concomitant]
     Dates: start: 20050601, end: 20070101

REACTIONS (2)
  - CARDIAC DISORDER [None]
  - DIABETES MELLITUS [None]
